FAERS Safety Report 9240239 (Version 1)
Quarter: 2013Q2

REPORT INFORMATION
  Report Type: Spontaneous
  Country: US (occurrence: US)
  Receive Date: 20130418
  Receipt Date: 20130418
  Transmission Date: 20140414
  Serious: Yes (Other)
  Sender: FDA-Public Use
  Company Number: US-PFIZER INC-2013117573

PATIENT
  Age: 80 Year
  Sex: Female
  Weight: 58.96 kg

DRUGS (5)
  1. CELEBREX [Suspect]
     Indication: SPINAL OSTEOARTHRITIS
     Dosage: UNK
     Dates: end: 2003
  2. CELEBREX [Suspect]
     Indication: PAIN
  3. HYDROCODONE/ ACETAMINOPHEN [Concomitant]
     Indication: PAIN
     Dosage: HYDROCODONE 10MG/ ACETAMINOPHEN 325 MG, 2X/DAY
  4. METHADONE [Concomitant]
     Indication: PAIN
     Dosage: 10 MG, 3X/DAY
  5. LORAZEPAM [Concomitant]
     Dosage: 0.5 MG, 2X/DAY

REACTIONS (3)
  - Colitis ulcerative [Unknown]
  - Cardiac disorder [Unknown]
  - Gastrooesophageal reflux disease [Unknown]
